FAERS Safety Report 24252249 (Version 1)
Quarter: 2024Q3

REPORT INFORMATION
  Report Type: Report from Study
  Country: US (occurrence: US)
  Receive Date: 20240827
  Receipt Date: 20240827
  Transmission Date: 20241016
  Serious: Yes (Other)
  Sender: ABBVIE
  Company Number: US-ABBVIE-5889989

PATIENT
  Age: 62 Year
  Sex: Male

DRUGS (5)
  1. SKYRIZI [Suspect]
     Active Substance: RISANKIZUMAB-RZAA
     Indication: Psoriasis
     Dosage: FORM STRENGTH 150MG/ML, EVERY 12 WEEKS THEREAFTER
     Route: 058
     Dates: start: 20240726
  2. SKYRIZI [Suspect]
     Active Substance: RISANKIZUMAB-RZAA
     Dosage: FORM STRENGTH 150MG/ML, WEEK 0
     Route: 058
     Dates: start: 20240105, end: 20240105
  3. SKYRIZI [Suspect]
     Active Substance: RISANKIZUMAB-RZAA
     Dosage: FORM STRENGTH 150MG/ML, WEEK 4
     Route: 058
     Dates: start: 20240202, end: 20240202
  4. SKYRIZI [Suspect]
     Active Substance: RISANKIZUMAB-RZAA
     Dosage: FORM STRENGTH 150MG/ML, WEEK 4
     Route: 058
     Dates: start: 20240202, end: 20240202
  5. SKYRIZI [Suspect]
     Active Substance: RISANKIZUMAB-RZAA
     Dosage: FORM STRENGTH 150MG/ML, EVERY 12 WEEKS THEREAFTER
     Route: 058
     Dates: start: 2024, end: 2024

REACTIONS (5)
  - Dental implantation [Unknown]
  - Mood altered [Unknown]
  - Therapeutic response unexpected [Unknown]
  - Arthralgia [Recovering/Resolving]
  - Device related infection [Recovered/Resolved]

NARRATIVE: CASE EVENT DATE: 20240101
